FAERS Safety Report 19613886 (Version 1)
Quarter: 2021Q3

REPORT INFORMATION
  Report Type: Spontaneous
  Country: US (occurrence: US)
  Receive Date: 20210726
  Receipt Date: 20210726
  Transmission Date: 20211014
  Serious: Yes (Hospitalization)
  Sender: FDA-Public Use
  Company Number: None

PATIENT
  Age: 79 Year
  Sex: Male

DRUGS (1)
  1. CAPECITABINE TAB [Suspect]
     Active Substance: CAPECITABINE
     Indication: CHOLANGIOCARCINOMA
     Route: 048
     Dates: start: 202104, end: 202106

REACTIONS (5)
  - Cardiac flutter [None]
  - Cellulitis [None]
  - Atrial fibrillation [None]
  - Intestinal obstruction [None]
  - Disseminated varicella zoster virus infection [None]

NARRATIVE: CASE EVENT DATE: 20210612
